FAERS Safety Report 9336377 (Version 2)
Quarter: 2013Q3

REPORT INFORMATION
  Report Type: Spontaneous
  Country: US (occurrence: US)
  Receive Date: 20130607
  Receipt Date: 20130808
  Transmission Date: 20140515
  Serious: Yes (Hospitalization)
  Sender: FDA-Public Use
  Company Number: US-BAYER-2013-070186

PATIENT
  Age: 51 Year
  Sex: Female

DRUGS (13)
  1. YASMIN [Suspect]
  2. YAZ [Suspect]
     Dosage: UNK
  3. MULTIVIT [Concomitant]
     Route: 048
  4. PROZAC [Concomitant]
     Dosage: UNK UNK, PRN
     Route: 048
  5. FLONASE [Concomitant]
     Dosage: UNK UNK, PRN
     Route: 048
  6. AZITHROMYCIN [Concomitant]
     Dosage: 250 II PO (TWO BY MOUTH) THAT DAY THEN I QD (ONE EVERYDAY) TIMES 4 D (DAYS) NUMBER 6
     Route: 048
  7. PREDNISONE [Concomitant]
     Dosage: 20 MG I PO QD [TIMES] 5 DAYS NUMBER 5
     Route: 048
  8. NAPROXEN [Concomitant]
     Indication: LIGAMENT SPRAIN
     Dosage: UNK
     Route: 048
     Dates: start: 20090502
  9. MEDROL [METHYLPREDNISOLONE] [Concomitant]
     Indication: LIGAMENT SPRAIN
     Dosage: UNK
     Route: 048
     Dates: start: 20090502
  10. ADVIL [Concomitant]
     Dosage: UNK UNK, PRN
     Route: 048
  11. HEPARIN [Concomitant]
     Indication: DEEP VEIN THROMBOSIS
  12. PERCOCET [Concomitant]
  13. ZOLPIDEM TARTRATE [Concomitant]

REACTIONS (7)
  - Deep vein thrombosis [None]
  - Injury [None]
  - Pain [None]
  - Emotional distress [None]
  - Anxiety [None]
  - Anhedonia [None]
  - Quality of life decreased [None]
